FAERS Safety Report 21364706 (Version 4)
Quarter: 2022Q4

REPORT INFORMATION
  Report Type: Other
  Country: JP (occurrence: JP)
  Receive Date: 20220922
  Receipt Date: 20221015
  Transmission Date: 20230112
  Serious: Yes (Other)
  Sender: FDA-Public Use
  Company Number: JP-ROCHE-3130674

PATIENT
  Age: 74 Year
  Sex: Male
  Weight: 65.4 kg

DRUGS (5)
  1. ATEZOLIZUMAB [Suspect]
     Active Substance: ATEZOLIZUMAB
     Indication: Small cell lung cancer extensive stage
     Route: 041
     Dates: start: 20201026, end: 20220622
  2. CARBOPLATIN [Suspect]
     Active Substance: CARBOPLATIN
     Indication: Small cell lung cancer extensive stage
     Dosage: 330 MILLIGRAM, SINGLE
     Route: 041
     Dates: start: 20201026, end: 20201026
  3. CARBOPLATIN [Suspect]
     Active Substance: CARBOPLATIN
     Dosage: 330 MILLIGRAM
     Route: 041
     Dates: end: 20201208
  4. ETOPOSIDE [Suspect]
     Active Substance: ETOPOSIDE
     Indication: Small cell lung cancer extensive stage
     Dosage: 95 MILLIGRAM
     Route: 065
     Dates: start: 20201026, end: 20201028
  5. ETOPOSIDE [Suspect]
     Active Substance: ETOPOSIDE
     Dosage: 95 MILLIGRAM
     Route: 065
     Dates: end: 20201210

REACTIONS (8)
  - Pneumonitis [Not Recovered/Not Resolved]
  - Post procedural pneumonia [Recovering/Resolving]
  - Cataract [Not Recovered/Not Resolved]
  - Inguinal hernia [Not Recovered/Not Resolved]
  - Periodontal disease [Not Recovered/Not Resolved]
  - Seborrhoeic dermatitis [Not Recovered/Not Resolved]
  - Oedema peripheral [Not Recovered/Not Resolved]
  - Anaemia [Recovered/Resolved]

NARRATIVE: CASE EVENT DATE: 20201115
